FAERS Safety Report 20058071 (Version 2)
Quarter: 2021Q4

REPORT INFORMATION
  Report Type: Spontaneous
  Country: CN (occurrence: CN)
  Receive Date: 20211111
  Receipt Date: 20211122
  Transmission Date: 20220303
  Serious: Yes (Life-Threatening, Hospitalization)
  Sender: FDA-Public Use
  Company Number: CN-TEVA-2021-CN-1974882

PATIENT
  Age: 46 Year
  Sex: Male

DRUGS (6)
  1. AZITHROMYCIN [Suspect]
     Active Substance: AZITHROMYCIN
     Indication: Legionella infection
     Route: 065
     Dates: start: 202102
  2. IMIPENEM [Suspect]
     Active Substance: IMIPENEM
     Indication: Legionella infection
     Route: 065
     Dates: start: 202102
  3. MEROPENEM [Suspect]
     Active Substance: MEROPENEM
     Indication: Legionella infection
     Route: 065
     Dates: start: 202102
  4. MOXIFLOXACIN [Suspect]
     Active Substance: MOXIFLOXACIN
     Indication: Legionella infection
     Route: 065
     Dates: start: 202102
  5. PIPERACILLIN SODIUM\TAZOBACTAM SODIUM [Suspect]
     Active Substance: PIPERACILLIN SODIUM\TAZOBACTAM SODIUM
     Indication: Legionella infection
     Route: 065
     Dates: start: 202102
  6. OSELTAMIVIR [Concomitant]
     Active Substance: OSELTAMIVIR
     Indication: Antiviral treatment
     Route: 065
     Dates: start: 202102

REACTIONS (1)
  - Bronchopulmonary aspergillosis [Unknown]

NARRATIVE: CASE EVENT DATE: 20210201
